FAERS Safety Report 21394359 (Version 5)
Quarter: 2023Q1

REPORT INFORMATION
  Report Type: Spontaneous
  Country: US (occurrence: US)
  Receive Date: 20220930
  Receipt Date: 20230315
  Transmission Date: 20230418
  Serious: No
  Sender: FDA-Public Use
  Company Number: US-GLAXOSMITHKLINE-US2022135713

PATIENT
  Age: 55 Year
  Sex: Female
  Weight: 99.79 kg

DRUGS (5)
  1. ZEJULA [Suspect]
     Active Substance: NIRAPARIB
     Indication: Ovarian cancer
     Dosage: 300 MG, QD
     Dates: start: 20220819
  2. ZEJULA [Suspect]
     Active Substance: NIRAPARIB
     Dosage: 300 MG, QD
  3. ZEJULA [Suspect]
     Active Substance: NIRAPARIB
     Dosage: 300 MG, QD
     Route: 048
     Dates: end: 20221214
  4. ZEJULA [Suspect]
     Active Substance: NIRAPARIB
     Dosage: 300 MG, QD
  5. ZEJULA [Suspect]
     Active Substance: NIRAPARIB
     Dosage: 300 MG, QD

REACTIONS (28)
  - Tumour marker increased [Unknown]
  - Nausea [Unknown]
  - Fatigue [Not Recovered/Not Resolved]
  - Parosmia [Unknown]
  - Muscle spasms [Not Recovered/Not Resolved]
  - Urinary tract infection [Unknown]
  - Blood glucose increased [Unknown]
  - Ear pain [Unknown]
  - Dysphagia [Unknown]
  - Bacterial infection [Unknown]
  - Feeling abnormal [Not Recovered/Not Resolved]
  - Decreased appetite [Unknown]
  - Illness [Unknown]
  - Heart rate increased [Unknown]
  - Insomnia [Not Recovered/Not Resolved]
  - Blood pressure increased [Unknown]
  - Dizziness [Unknown]
  - Headache [Unknown]
  - Influenza [Recovered/Resolved]
  - Pyrexia [Not Recovered/Not Resolved]
  - Cystitis [Unknown]
  - Palpitations [Unknown]
  - Throat irritation [Unknown]
  - Pain [Unknown]
  - Cough [Unknown]
  - Respiratory tract congestion [Unknown]
  - Suffocation feeling [Unknown]
  - Product dose omission issue [Unknown]

NARRATIVE: CASE EVENT DATE: 20221001
